FAERS Safety Report 5102806-2 (Version None)
Quarter: 2006Q3

REPORT INFORMATION
  Report Type: 
  Country: None (occurrence: None)
  Receive Date: 20060907
  Receipt Date: 20060829
  Transmission Date: 20061208
  Serious: Yes (Hospitalization)
  Sender: FDA-Public Use
  Company Number: 2006105139

PATIENT
  Sex: Female

DRUGS (4)
  1. DALTEPARIN SODIUM [Suspect]
     Indication: THROMBOSIS PROPHYLAXIS
     Dates: start: 20040101, end: 20040101
  2. ENOXAPARIN SODIUM [Suspect]
     Indication: THROMBOSIS PROPHYLAXIS
     Dates: start: 20040101, end: 20040101
  3. ASPIRIN [Concomitant]
  4. PENICILLINE (BENZYLPENICILLIN SODIUM) [Concomitant]

REACTIONS (4)
  - DRUG EXPOSURE DURING PREGNANCY [None]
  - ECZEMA [None]
  - INJECTION SITE REACTION [None]
  - PRURITUS [None]
